FAERS Safety Report 7272303-7 (Version None)
Quarter: 2011Q1

REPORT INFORMATION
  Report Type: 
  Country: None (occurrence: None)
  Receive Date: 20110203
  Receipt Date: 20110125
  Transmission Date: 20110831
  Serious: Yes (Other)
  Sender: FDA-Public Use
  Company Number: PHEH2008US11937

PATIENT
  Sex: Female
  Weight: 48.28 kg

DRUGS (2)
  1. EXJADE [Suspect]
     Indication: HAEMOCHROMATOSIS
     Dosage: 1000 MG, QD
  2. EXJADE [Suspect]
     Indication: IRON METABOLISM DISORDER
     Dosage: 500 MG, UNK

REACTIONS (4)
  - HEADACHE [None]
  - ENCEPHALOPATHY [None]
  - MALAISE [None]
  - MIGRAINE [None]
